FAERS Safety Report 10467906 (Version 1)
Quarter: 2014Q3

REPORT INFORMATION
  Report Type: Spontaneous
  Country: KR (occurrence: KR)
  Receive Date: 20140922
  Receipt Date: 20140922
  Transmission Date: 20150326
  Serious: Yes (Other)
  Sender: FDA-Public Use
  Company Number: KR-PFIZER INC-2014255521

PATIENT
  Sex: Female

DRUGS (1)
  1. CLEOCIN [Suspect]
     Active Substance: CLINDAMYCIN PHOSPHATE
     Dosage: UNK; FOR 3-4 DAYS

REACTIONS (2)
  - Haematochezia [Unknown]
  - Abdominal pain [Unknown]
